FAERS Safety Report 5733204-6 (Version None)
Quarter: 2008Q2

REPORT INFORMATION
  Report Type: 
  Country: None (occurrence: None)
  Receive Date: 20080509
  Receipt Date: 20080428
  Transmission Date: 20081010
  Serious: Yes (Hospitalization)
  Sender: FDA-Public Use
  Company Number: US-ELI_LILLY_AND_COMPANY-US200804004637

PATIENT
  Sex: Female

DRUGS (8)
  1. FORTEO [Suspect]
     Indication: OSTEOPOROSIS
     Dosage: UNK, UNK
     Dates: start: 20080325
  2. ALLEGRA [Concomitant]
     Dosage: 60 MG, AS NEEDED
  3. ASPIRIN [Concomitant]
     Dosage: 81 MG, DAILY (1/D)
  4. COUMADIN [Concomitant]
  5. VERELAN PM [Concomitant]
     Dosage: 100 MG, UNK
  6. ZOCOR [Concomitant]
     Dosage: 20 MG, UNK
  7. PROTONIX [Concomitant]
     Dosage: 40 MG, UNK
  8. BISOPROLOL FUMARATE [Concomitant]
     Dosage: 2.5 MG, UNK

REACTIONS (1)
  - PULMONARY CONGESTION [None]
